FAERS Safety Report 4602104-7 (Version None)
Quarter: 2005Q2

REPORT INFORMATION
  Report Type: 
  Country: None (occurrence: None)
  Receive Date: 20050215
  Receipt Date: 20040706
  Transmission Date: 20051028
  Serious: Yes (Hospitalization, Other)
  Sender: FDA-Public Use
  Company Number: MC200400060

PATIENT
  Age: 34 Year
  Sex: Female
  Weight: 113.4 kg

DRUGS (9)
  1. ANGIOMAX [Suspect]
     Indication: ANTICOAGULANT THERAPY
     Dosage: 0.75 MG/KG. BOLUS, IV BOLUS
     Route: 040
  2. ANGIOMAX [Suspect]
     Indication: CORONARY ANGIOPLASTY
     Dosage: 0.75 MG/KG. BOLUS, IV BOLUS
     Route: 040
  3. ANGIOMAX [Suspect]
     Indication: STENT PLACEMENT
     Dosage: 0.75 MG/KG. BOLUS, IV BOLUS
     Route: 040
  4. ANGIOMAX [Suspect]
     Dosage: 1.75 MG/KG, IV HR INF, INTRAVENOUS
     Route: 042
  5. PLAVIX [Concomitant]
  6. LIPITOR [Concomitant]
  7. TOPROL-XL [Concomitant]
  8. ZYRTEC [Concomitant]
  9. ACETYLSALICYLIC ACID SRT [Concomitant]

REACTIONS (1)
  - CORONARY ARTERY THROMBOSIS [None]
